FAERS Safety Report 12376452 (Version 1)
Quarter: 2016Q2

REPORT INFORMATION
  Report Type: Spontaneous
  Country: US (occurrence: US)
  Receive Date: 20160517
  Receipt Date: 20160517
  Transmission Date: 20160815
  Serious: No
  Sender: FDA-Public Use
  Company Number: US-TEIKOKU PHARMA USA-TPU2016-00083

PATIENT
  Sex: Female

DRUGS (12)
  1. IBUPROFEN. [Concomitant]
     Active Substance: IBUPROFEN
     Dosage: 1-2 TABLETS
  2. LIDOCAINE PATCH [Suspect]
     Active Substance: LIDOCAINE
     Indication: PSORIATIC ARTHROPATHY
     Dosage: CUT IN HALF, AS NEEDED, OVER THE S1 JOINT
     Route: 061
     Dates: start: 2011
  3. METHOTREXATE [Concomitant]
     Active Substance: METHOTREXATE
     Indication: PSORIATIC ARTHROPATHY
     Dosage: 10 TABLETS OF 2.5, ONCE A WEEK
     Route: 048
  4. SIMPONI [Concomitant]
     Active Substance: GOLIMUMAB
     Indication: ANKYLOSING SPONDYLITIS
  5. LIDOCAINE PATCH [Suspect]
     Active Substance: LIDOCAINE
     Indication: BONE PAIN
  6. LIDOCAINE PATCH [Suspect]
     Active Substance: LIDOCAINE
     Indication: ANKYLOSING SPONDYLITIS
  7. NAPROXEN. [Suspect]
     Active Substance: NAPROXEN
     Indication: PAIN
     Dosage: FULL PRESCRIPTION STRENGTH
  8. ZANTAC [Concomitant]
     Active Substance: RANITIDINE HYDROCHLORIDE
     Indication: ABDOMINAL PAIN UPPER
  9. SIMPONI [Concomitant]
     Active Substance: GOLIMUMAB
     Indication: PSORIATIC ARTHROPATHY
     Route: 048
  10. ALEVE [Concomitant]
     Active Substance: NAPROXEN SODIUM
     Indication: PAIN
     Dosage: ^MAXIMUM STRENGTH I CAN TAKE PER DAY^
  11. DILAUDID [Concomitant]
     Active Substance: HYDROMORPHONE HYDROCHLORIDE
     Dosage: UP TO 4 TIMES PER DAY
  12. SYNTHROID [Concomitant]
     Active Substance: LEVOTHYROXINE SODIUM
     Indication: HYPOTHYROIDISM
     Dates: start: 2003

REACTIONS (4)
  - Drug ineffective for unapproved indication [Not Recovered/Not Resolved]
  - Abdominal pain upper [Unknown]
  - Wrong technique in product usage process [Unknown]
  - Body height decreased [Not Recovered/Not Resolved]
